FAERS Safety Report 4556823-1 (Version None)
Quarter: 2005Q1

REPORT INFORMATION
  Report Type: 
  Country: None (occurrence: None)
  Receive Date: 20050118
  Receipt Date: 20050111
  Transmission Date: 20050727
  Serious: Yes (Death)
  Sender: FDA-Public Use
  Company Number: 163-20785-04120294

PATIENT
  Age: 69 Year
  Sex: Male

DRUGS (1)
  1. THALOMID [Suspect]
     Indication: MULTIPLE MYELOMA
     Dosage: 100-200 MG , DAILY, ORAL
     Route: 048
     Dates: start: 20040227, end: 20041101

REACTIONS (2)
  - CARDIAC FAILURE CONGESTIVE [None]
  - COLITIS ISCHAEMIC [None]
